FAERS Safety Report 21112789 (Version 1)
Quarter: 2022Q3

REPORT INFORMATION
  Report Type: Spontaneous
  Country: FR (occurrence: FR)
  Receive Date: 20220721
  Receipt Date: 20220721
  Transmission Date: 20221027
  Serious: Yes (Death, Hospitalization)
  Sender: FDA-Public Use
  Company Number: None

PATIENT
  Age: 68 Year
  Sex: Male
  Weight: 96 kg

DRUGS (4)
  1. DEXAMETHASONE [Suspect]
     Active Substance: DEXAMETHASONE
     Indication: Angiocentric lymphoma
     Dosage: 40 MG, QD
     Route: 048
     Dates: start: 20220705, end: 20220708
  2. GEMCITABINE [Suspect]
     Active Substance: GEMCITABINE
     Indication: Angiocentric lymphoma
     Dosage: 2000 MG, CYCLIC
     Route: 042
     Dates: start: 20220705, end: 20220705
  3. ASPARAGINASE [Suspect]
     Active Substance: ASPARAGINASE
     Indication: Angiocentric lymphoma
     Dosage: 12000 IU, BID
     Route: 042
     Dates: start: 20220707, end: 20220713
  4. METHOTREXATE [Suspect]
     Active Substance: METHOTREXATE
     Indication: Angiocentric lymphoma
     Dosage: 6000 MG, CYCLIC
     Route: 042
     Dates: start: 20220705, end: 20220705

REACTIONS (2)
  - Pancreatitis acute [Fatal]
  - Haematochezia [Not Recovered/Not Resolved]

NARRATIVE: CASE EVENT DATE: 20220713
